FAERS Safety Report 10498368 (Version 5)
Quarter: 2015Q1

REPORT INFORMATION
  Report Type: Report from Study
  Country: US (occurrence: US)
  Receive Date: 20141006
  Receipt Date: 20150327
  Transmission Date: 20150720
  Serious: Yes (Other)
  Sender: FDA-Public Use
  Company Number: US-SA-2014SA083176

PATIENT
  Age: 60 Year
  Sex: Female

DRUGS (5)
  1. GABAPENTIN. [Concomitant]
     Active Substance: GABAPENTIN
  2. BACLOFEN. [Concomitant]
     Active Substance: BACLOFEN
  3. PLAVIX [Concomitant]
     Active Substance: CLOPIDOGREL BISULFATE
  4. AUBAGIO [Suspect]
     Active Substance: TERIFLUNOMIDE
     Indication: MULTIPLE SCLEROSIS
     Route: 048
     Dates: start: 20130314
  5. METOPROLOL [Concomitant]
     Active Substance: METOPROLOL

REACTIONS (19)
  - Oropharyngeal pain [Unknown]
  - Cholecystectomy [Unknown]
  - Skin fissures [Not Recovered/Not Resolved]
  - Hypoaesthesia [Unknown]
  - Confusional state [Unknown]
  - Skin exfoliation [Unknown]
  - Skin discolouration [Unknown]
  - Skin exfoliation [Not Recovered/Not Resolved]
  - Insomnia [Unknown]
  - Fall [Unknown]
  - Pain [Unknown]
  - Dyskinesia [Unknown]
  - Peripheral swelling [Unknown]
  - Wound secretion [Not Recovered/Not Resolved]
  - Hypersensitivity [Unknown]
  - Fatigue [Unknown]
  - Memory impairment [Unknown]
  - Oedema peripheral [Unknown]
  - Blister [Unknown]

NARRATIVE: CASE EVENT DATE: 2013
